FAERS Safety Report 6009136-5 (Version None)
Quarter: 2008Q4

REPORT INFORMATION
  Report Type: 
  Country: None (occurrence: None)
  Receive Date: 20081216
  Receipt Date: 20081204
  Transmission Date: 20090506
  Serious: Yes (Hospitalization)
  Sender: FDA-Public Use
  Company Number: AX205-08-0513

PATIENT
  Age: 62 Year
  Sex: Female
  Weight: 140.6151 kg

DRUGS (11)
  1. ABRAXANE [Suspect]
     Indication: BREAST CANCER METASTATIC
     Dosage: (125 MG/M2, 9 WEEK)
     Dates: start: 20081121
  2. NEXAVAR [Suspect]
     Indication: BREAST CANCER METASTATIC
     Dosage: 400 MG BID (9 DAY), ORAL
     Route: 048
     Dates: start: 20081121
  3. HYDROCHLOROTHIAZIDE [Suspect]
     Indication: HYPERTENSION
     Dosage: (25 MG), ORAL
     Route: 048
  4. MOBIC [Concomitant]
  5. HYDROCHLOROTHIAZIDE [Concomitant]
  6. VISTERIL (HYDROXYZINE EMBONATE) [Concomitant]
  7. LORTAB [Concomitant]
  8. MULTIVITAMIN [Concomitant]
  9. CALCIUM + VITAMIN D (CALCIUM WITH VITAMIN D) [Concomitant]
  10. FLEXERIL (CYCLOPENZAPRINE HYDROCHLORIDE) [Concomitant]
  11. LISINOPRIL [Concomitant]

REACTIONS (18)
  - ARTHRALGIA [None]
  - BLOOD BILIRUBIN INCREASED [None]
  - BLOOD CALCIUM DECREASED [None]
  - BLOOD PRESSURE DIASTOLIC DECREASED [None]
  - BLOOD SODIUM DECREASED [None]
  - CARBON DIOXIDE DECREASED [None]
  - CONSTIPATION [None]
  - DEHYDRATION [None]
  - HAEMATOCRIT DECREASED [None]
  - HAEMOGLOBIN DECREASED [None]
  - HYPOPHAGIA [None]
  - MUSCULAR WEAKNESS [None]
  - PYREXIA [None]
  - RASH [None]
  - RENAL FAILURE [None]
  - RESPIRATORY RATE INCREASED [None]
  - SEPSIS [None]
  - WHITE BLOOD CELL COUNT DECREASED [None]
